FAERS Safety Report 8818767 (Version 1)
Quarter: 2012Q4

REPORT INFORMATION
  Report Type: Spontaneous
  Country: US (occurrence: None)
  Receive Date: 20121002
  Receipt Date: 20121002
  Transmission Date: 20130627
  Serious: Yes (Other)
  Sender: FDA-Public Use
  Company Number: IMP_05965_2012

PATIENT
  Age: 70 Year
  Sex: Female
  Weight: 54.43 kg

DRUGS (1)
  1. BUDEPRION SR [Suspect]
     Indication: DEPRESSION
     Route: 048
     Dates: start: 20120620, end: 20120810

REACTIONS (8)
  - Feeling abnormal [None]
  - Product odour abnormal [None]
  - Product quality issue [None]
  - Fatigue [None]
  - Anxiety [None]
  - Drug ineffective [None]
  - Withdrawal syndrome [None]
  - Major depression [None]
